FAERS Safety Report 5245998-7 (Version None)
Quarter: 2007Q1

REPORT INFORMATION
  Report Type: 
  Country: None (occurrence: None)
  Receive Date: 20070220
  Receipt Date: 20070202
  Transmission Date: 20070707
  Serious: Yes (Other)
  Sender: FDA-Public Use
  Company Number: DSA_29324_2007

PATIENT
  Age: 65 Year
  Sex: Male

DRUGS (2)
  1. ENALAPRIL MALEATE [Suspect]
     Indication: HYPERTENSION
     Dosage: 2.5 MG TID PO
     Route: 048
     Dates: start: 19970101
  2. ATORVASTATIN CALCIUM [Concomitant]

REACTIONS (3)
  - DEPRESSION [None]
  - MEMORY IMPAIRMENT [None]
  - SENSORY DISTURBANCE [None]
